FAERS Safety Report 15120597 (Version 3)
Quarter: 2018Q3

REPORT INFORMATION
  Report Type: Report from Study
  Country: PA (occurrence: PA)
  Receive Date: 20180709
  Receipt Date: 20180801
  Transmission Date: 20181010
  Serious: Yes (Other)
  Sender: FDA-Public Use
  Company Number: PHHY2018PA036306

PATIENT
  Sex: Female
  Weight: 127 kg

DRUGS (1)
  1. AFINITOR [Suspect]
     Active Substance: EVEROLIMUS
     Indication: BREAST CANCER
     Dosage: UNK
     Route: 065
     Dates: end: 20180611

REACTIONS (10)
  - Pain [Unknown]
  - Arthralgia [Unknown]
  - Cough [Unknown]
  - Pruritus [Unknown]
  - Dyspnoea [Unknown]
  - Acne [Unknown]
  - Pulmonary oedema [Unknown]
  - Feeling abnormal [Unknown]
  - Laboratory test abnormal [Unknown]
  - Hypersensitivity [Unknown]
